FAERS Safety Report 4592643-X (Version None)
Quarter: 2005Q1

REPORT INFORMATION
  Report Type: 
  Country: None (occurrence: None)
  Receive Date: 20050228
  Receipt Date: 20050216
  Transmission Date: 20050727
  Serious: Yes (Other)
  Sender: FDA-Public Use
  Company Number: US-JNJFOC-20041106007

PATIENT
  Sex: Female
  Weight: 52.16 kg

DRUGS (16)
  1. LEVAQUIN [Suspect]
  2. HUMIBID LA [Suspect]
     Indication: DRUG USE FOR UNKNOWN INDICATION
  3. ATENOLOL [Concomitant]
  4. LEXAPRO [Concomitant]
  5. PERCODAN [Concomitant]
  6. PERCODAN [Concomitant]
  7. PERCODAN [Concomitant]
  8. PERCODAN [Concomitant]
  9. PERCODAN [Concomitant]
  10. PERCODAN [Concomitant]
  11. ZYRTEC [Concomitant]
  12. TEMAZAPAM [Concomitant]
  13. NORTRYPTYLINE [Concomitant]
  14. VIVELLE DOT ESTROGEN [Concomitant]
  15. DEPO-PROVERA [Concomitant]
  16. GABITRIL [Concomitant]

REACTIONS (5)
  - APHASIA [None]
  - DYSTONIA [None]
  - OCULOGYRATION [None]
  - OPISTHOTONUS [None]
  - TORTICOLLIS [None]
